FAERS Safety Report 8017991-2 (Version None)
Quarter: 2012Q1

REPORT INFORMATION
  Report Type: 
  Country: None (occurrence: None)
  Receive Date: 20120103
  Receipt Date: 20111229
  Transmission Date: 20120608
  Serious: Yes (Hospitalization, Other)
  Sender: FDA-Public Use
  Company Number: US-AMGEN-USASP2011026304

PATIENT
  Age: 59 Year
  Sex: Male
  Weight: 70.295 kg

DRUGS (8)
  1. VECTIBIX [Suspect]
  2. NORVASC [Concomitant]
     Dosage: 5 MG, UNK
     Route: 048
     Dates: start: 20090101
  3. ARANESP [Concomitant]
     Indication: ANAEMIA
     Dosage: 500 MUG, UNK
  4. PROTONIX [Concomitant]
     Dosage: 40 MG, QD
     Route: 048
     Dates: start: 20090101
  5. ATENOLOL [Concomitant]
     Dosage: 25 MG, QD
     Route: 048
     Dates: start: 20090101
  6. ZOLOFT [Concomitant]
     Dosage: 50 MG, QD
     Route: 048
     Dates: start: 20110318
  7. XGEVA [Concomitant]
     Indication: METASTASES TO BONE
     Dosage: 120 MG, Q4WK
     Route: 058
     Dates: start: 20110331
  8. VECTIBIX [Suspect]
     Indication: RECTAL CANCER METASTATIC
     Dosage: 420 MG, Q2WK
     Route: 042
     Dates: start: 20110331, end: 20110414

REACTIONS (13)
  - SMALL INTESTINAL OBSTRUCTION [None]
  - CARDIOMYOPATHY [None]
  - RENAL FAILURE [None]
  - HYPOTENSION [None]
  - NAUSEA [None]
  - DEHYDRATION [None]
  - VENTRICULAR HYPOKINESIA [None]
  - DYSPNOEA [None]
  - VOMITING [None]
  - RASH [None]
  - CARDIAC FAILURE CONGESTIVE [None]
  - MYOCARDITIS [None]
  - DIARRHOEA [None]
